FAERS Safety Report 24200803 (Version 1)
Quarter: 2024Q3

REPORT INFORMATION
  Report Type: Spontaneous
  Country: US (occurrence: None)
  Receive Date: 20240810
  Receipt Date: 20240810
  Transmission Date: 20241017
  Serious: Yes (Other)
  Sender: Public
  Company Number: None

PATIENT
  Age: 51 Week
  Sex: Female
  Weight: 61.65 kg

DRUGS (1)
  1. MOUNJARO [Suspect]
     Active Substance: TIRZEPATIDE

REACTIONS (3)
  - Pain in extremity [None]
  - Facial pain [None]
  - Paraesthesia [None]

NARRATIVE: CASE EVENT DATE: 20240721
